FAERS Safety Report 10475703 (Version 1)
Quarter: 2014Q3

REPORT INFORMATION
  Report Type: Spontaneous
  Country: US (occurrence: US)
  Receive Date: 20140925
  Receipt Date: 20140925
  Transmission Date: 20150326
  Serious: No
  Sender: FDA-Public Use
  Company Number: US-BAYER-2014-142016

PATIENT
  Sex: Male

DRUGS (1)
  1. ULTRAVIST [Suspect]
     Active Substance: IOPROMIDE
     Indication: IMAGING PROCEDURE
     Dosage: 10 CC, UNK
     Route: 042

REACTIONS (6)
  - Feeling hot [None]
  - Dyspnoea [None]
  - Pruritus [None]
  - Medication error [None]
  - Urticaria [Recovered/Resolved]
  - Erythema [None]
